FAERS Safety Report 6214275-X (Version None)
Quarter: 2009Q2

REPORT INFORMATION
  Report Type: 
  Country: None (occurrence: None)
  Receive Date: 20090604
  Receipt Date: 20080416
  Transmission Date: 20091009
  Serious: Yes (Other)
  Sender: FDA-Public Use
  Company Number: US-ASTRAZENECA-2007UW19158

PATIENT
  Age: 12998 Day
  Sex: Female
  Weight: 94.8 kg

DRUGS (33)
  1. SEROQUEL [Suspect]
     Indication: SLEEP DISORDER
     Route: 048
     Dates: start: 20060815
  2. SEROQUEL [Suspect]
     Dosage: 50MG -100MG
     Route: 048
     Dates: start: 20060818
  3. RISPERDAL [Concomitant]
     Indication: BIPOLAR DISORDER
     Dates: end: 20060816
  4. RISPERDAL [Concomitant]
     Indication: SCHIZOPHRENIA
     Dates: end: 20060816
  5. GLIPIZIDE [Concomitant]
     Dates: start: 20060824
  6. SKELAXIN [Concomitant]
     Dates: start: 20060906
  7. NORTRIPTYLINE HCL [Concomitant]
     Dates: start: 20060906
  8. NEXIUM [Concomitant]
     Dates: start: 20060825
  9. MAXALT [Concomitant]
     Dates: start: 20061009
  10. DIAZEPAM [Concomitant]
     Dates: start: 20060908
  11. CYMBALTA [Concomitant]
     Dates: start: 20060810
  12. ABILIFY [Concomitant]
     Dates: start: 20060810
  13. TEMAZEPAM [Concomitant]
     Dates: start: 20060908
  14. PREDNISONE [Concomitant]
     Dosage: 40MG-10MG
     Dates: start: 20061113
  15. DOXYCYCLINE [Concomitant]
     Dates: start: 20070502
  16. ADVAIR HFA [Concomitant]
     Dates: start: 20070821
  17. PERCOCET [Concomitant]
     Indication: PAIN
     Dates: start: 20071219
  18. SINGULAIR [Concomitant]
     Dates: start: 20061115
  19. LOMOTIL [Concomitant]
  20. LEVAQUIN [Concomitant]
     Dates: start: 20061009
  21. DIFLUCAN [Concomitant]
  22. LYRICA [Concomitant]
     Dates: start: 20070122
  23. LANTUS [Concomitant]
     Dosage: 30 UNITS - 35 UNITS
     Dates: start: 20061026
  24. LAMICTAL [Concomitant]
     Dosage: 100MG - 200MG
     Dates: start: 20070215
  25. CLONAZEPAM [Concomitant]
     Dates: start: 20060518
  26. TRAZODONE HCL [Concomitant]
     Dosage: 100MG - 150MG
     Dates: start: 20070425
  27. AZITHROMYCIN [Concomitant]
     Dates: start: 20061002
  28. PROMETHAZINE [Concomitant]
     Dates: start: 20060623
  29. OMEPRAZOLE [Concomitant]
     Dates: start: 20070724
  30. MIRTAZAPINE [Concomitant]
     Dosage: 30MG - 45MG
     Dates: start: 20070509
  31. CARBAMAZEPINE [Concomitant]
  32. VALTREX [Concomitant]
     Dates: start: 20070412
  33. FLUCONAZOLE [Concomitant]
     Dosage: 100MG - 150MG
     Dates: start: 20061110

REACTIONS (3)
  - DIABETES MELLITUS [None]
  - DIABETES MELLITUS INADEQUATE CONTROL [None]
  - DIABETIC NEUROPATHY [None]
